FAERS Safety Report 24445972 (Version 1)
Quarter: 2024Q4

REPORT INFORMATION
  Report Type: Spontaneous
  Country: US (occurrence: US)
  Receive Date: 20241016
  Receipt Date: 20241016
  Transmission Date: 20250115
  Serious: No
  Sender: Unknown Manufacturer
  Company Number: SHLD2400133

PATIENT
  Age: 71 Year
  Sex: Female

DRUGS (1)
  1. ACCRUFER [Suspect]
     Active Substance: FERRIC MALTOL
     Indication: Anaemia
     Dosage: 30 MILLIGRAM, 1 CAPSULE BID
     Route: 048
     Dates: start: 202405

REACTIONS (2)
  - Drug ineffective [Unknown]
  - Treatment noncompliance [Unknown]
